FAERS Safety Report 9928066 (Version 1)
Quarter: 2014Q1

REPORT INFORMATION
  Report Type: Spontaneous
  Country: US (occurrence: US)
  Receive Date: 20140227
  Receipt Date: 20140227
  Transmission Date: 20141002
  Serious: No
  Sender: FDA-Public Use
  Company Number: US-B.I. PHARMACEUTICALS,INC./RIDGEFIELD-2014-BI-07349BP

PATIENT
  Age: 53 Year
  Sex: Female
  Weight: 54 kg

DRUGS (8)
  1. ZANTAC (RANITIDINE HYDROCHLORIDE) [Suspect]
     Indication: GASTRITIS
     Dosage: 150 MG
     Route: 048
  2. ZANTAC (RANITIDINE HYDROCHLORIDE) [Suspect]
     Dosage: 150 MG
     Route: 048
     Dates: start: 201312, end: 201401
  3. FLEXERIL [Concomitant]
     Indication: MYALGIA
     Route: 048
  4. FLEXERIL [Concomitant]
     Indication: RHEUMATOID ARTHRITIS
  5. CELEBREX [Concomitant]
     Indication: RHEUMATOID ARTHRITIS
     Route: 048
  6. HUMIRA [Concomitant]
     Indication: RHEUMATOID ARTHRITIS
     Dosage: FORMULATION AS REPORTED: SUBCUTANEOUS
     Route: 058
  7. VITAMIN C [Concomitant]
     Route: 065
  8. MULTIVITAMIN [Concomitant]
     Route: 065

REACTIONS (5)
  - Eye pruritus [Recovered/Resolved]
  - Feeling hot [Recovered/Resolved]
  - Urticaria [Recovered/Resolved]
  - Vomiting [Recovered/Resolved]
  - Off label use [Unknown]
